FAERS Safety Report 21258737 (Version 1)
Quarter: 2022Q3

REPORT INFORMATION
  Report Type: Report from Study
  Country: FR (occurrence: None)
  Receive Date: 20220826
  Receipt Date: 20220826
  Transmission Date: 20221027
  Serious: Yes (Other)
  Sender: FDA-Public Use
  Company Number: 2022A296680

PATIENT
  Age: 752 Month
  Sex: Male
  Weight: 94 kg

DRUGS (5)
  1. EVUSHELD [Suspect]
     Active Substance: CILGAVIMAB\TIXAGEVIMAB
     Indication: COVID-19 prophylaxis
     Dosage: ONCE/SINGLE ADMINISTRATION
     Route: 030
     Dates: start: 20220627
  2. ANTI-COVID-19 VACCINATION [Concomitant]
     Route: 065
     Dates: end: 20211108
  3. CERTICAN [Concomitant]
     Active Substance: EVEROLIMUS
     Route: 065
  4. LENVATINIB [Concomitant]
     Active Substance: LENVATINIB
     Route: 065
  5. CELLCEPT [Concomitant]
     Active Substance: MYCOPHENOLATE MOFETIL
     Route: 065

REACTIONS (1)
  - COVID-19 [Not Recovered/Not Resolved]

NARRATIVE: CASE EVENT DATE: 20220803
